FAERS Safety Report 7702997-0 (Version None)
Quarter: 2011Q3

REPORT INFORMATION
  Report Type: 
  Country: None (occurrence: None)
  Receive Date: 20110823
  Receipt Date: 20110811
  Transmission Date: 20111222
  Serious: Yes (Hospitalization)
  Sender: FDA-Public Use
  Company Number: US-ELI_LILLY_AND_COMPANY-US201108004455

PATIENT
  Sex: Female

DRUGS (1)
  1. HUMALOG MIX 75/25 [Suspect]
     Indication: DIABETES MELLITUS
     Dosage: 6 U MORNINGS, 26 U AFTERNOONS
     Route: 065
     Dates: start: 20101201

REACTIONS (2)
  - BLOOD GLUCOSE INCREASED [None]
  - URINARY TRACT INFECTION [None]
